FAERS Safety Report 23920600 (Version 1)
Quarter: 2024Q2

REPORT INFORMATION
  Report Type: Spontaneous
  Country: US (occurrence: None)
  Receive Date: 20240530
  Receipt Date: 20240530
  Transmission Date: 20240716
  Serious: Yes (Hospitalization)
  Sender: FDA-Public Use
  Company Number: None

PATIENT
  Sex: Male

DRUGS (9)
  1. LENALIDOMIDE [Suspect]
     Active Substance: LENALIDOMIDE
     Indication: Plasma cell myeloma
     Dosage: FREQUENCY : AS DIRECTED;?
     Route: 048
     Dates: start: 202207
  2. ELIQUIS [Concomitant]
     Active Substance: APIXABAN
  3. DULOXETINE [Concomitant]
  4. GABAPENTIN [Concomitant]
  5. LEVOTHYROXINE [Concomitant]
  6. REVLIMID [Concomitant]
     Active Substance: LENALIDOMIDE
  7. ROSUVASTATIN [Concomitant]
  8. ALLOPURINOL [Concomitant]
  9. ACYCLOVIR [Concomitant]
     Active Substance: ACYCLOVIR

REACTIONS (1)
  - Cerebrovascular accident [None]
